FAERS Safety Report 14010914 (Version 1)
Quarter: 2017Q3

REPORT INFORMATION
  Report Type: Spontaneous
  Country: US (occurrence: US)
  Receive Date: 20170926
  Receipt Date: 20170926
  Transmission Date: 20171128
  Serious: No
  Sender: FDA-Public Use
  Company Number: US-PFIZER INC-2017412119

PATIENT
  Sex: Male
  Weight: 92.99 kg

DRUGS (3)
  1. GLYBURIDE. [Concomitant]
     Active Substance: GLYBURIDE
     Indication: DIABETES MELLITUS
     Dosage: 2.5MG A DAY
  2. ADVIL [Suspect]
     Active Substance: IBUPROFEN
     Indication: BLOOD GLUCOSE INCREASED
  3. ADVIL [Suspect]
     Active Substance: IBUPROFEN
     Indication: HEADACHE
     Dosage: TOOK MORE THAN 4 TO 6 PILLS A MONTH

REACTIONS (2)
  - Drug effect incomplete [Unknown]
  - Intentional product misuse [Unknown]

NARRATIVE: CASE EVENT DATE: 201603
